FAERS Safety Report 12610358 (Version 2)
Quarter: 2017Q1

REPORT INFORMATION
  Report Type: Report from Study
  Country: JP (occurrence: JP)
  Receive Date: 20160801
  Receipt Date: 20170201
  Transmission Date: 20170428
  Serious: Yes (Hospitalization, Other)
  Sender: FDA-Public Use
  Company Number: JP-GLAXOSMITHKLINE-JP2016JPN107092

PATIENT
  Age: 6 Year
  Sex: Female
  Weight: 17 kg

DRUGS (18)
  1. FLOLAN [Suspect]
     Active Substance: EPOPROSTENOL SODIUM
     Dosage: 23 NG/KG/MIN
     Route: 042
     Dates: start: 20130405, end: 20130925
  2. GLUCONSAN K [Concomitant]
     Dosage: UNK
     Dates: end: 20150722
  3. AMBRISENTAN [Suspect]
     Active Substance: AMBRISENTAN
     Dosage: 0.8 MG, BID
     Route: 048
     Dates: start: 20120911, end: 20150708
  4. FLOLAN [Suspect]
     Active Substance: EPOPROSTENOL SODIUM
     Indication: PULMONARY ARTERIAL HYPERTENSION
     Dosage: 19.4 NG/KG/MIN
     Route: 042
     Dates: end: 20130401
  5. FLOLAN [Suspect]
     Active Substance: EPOPROSTENOL SODIUM
     Dosage: 21.0 NG/KG/MIN
     Route: 042
     Dates: start: 20130401, end: 20130403
  6. FLOLAN [Suspect]
     Active Substance: EPOPROSTENOL SODIUM
     Dosage: 24 NG/KG/MIN
     Route: 042
     Dates: start: 20130925, end: 20131120
  7. FUROSEMIDE. [Concomitant]
     Active Substance: FUROSEMIDE
     Dosage: UNK
  8. AMBRISENTAN [Suspect]
     Active Substance: AMBRISENTAN
     Indication: PULMONARY ARTERIAL HYPERTENSION
     Dosage: 0.4 MG, BID
     Route: 048
     Dates: start: 20120906, end: 20120910
  9. AMBRISENTAN [Suspect]
     Active Substance: AMBRISENTAN
     Dosage: 1.0 MG, BID
     Route: 048
     Dates: start: 20150709, end: 20150715
  10. AMBRISENTAN [Suspect]
     Active Substance: AMBRISENTAN
     Dosage: 2.5 MG, QD
     Route: 048
     Dates: start: 20150716
  11. SPIRONOLACTONE. [Concomitant]
     Active Substance: SPIRONOLACTONE
     Dosage: UNK
  12. ZYRTEC DRY SYRUP [Concomitant]
     Dosage: UNK
     Dates: end: 20120917
  13. CEFAZOLIN SODIUM INJECTION [Concomitant]
     Dosage: UNK
     Dates: start: 20150701, end: 20150719
  14. FLOLAN [Suspect]
     Active Substance: EPOPROSTENOL SODIUM
     Dosage: 22.0 NG/KG/MIN
     Route: 042
     Dates: start: 20130403, end: 20130405
  15. FLOLAN [Suspect]
     Active Substance: EPOPROSTENOL SODIUM
     Dosage: 25 NG/KG/MIN
     Route: 042
     Dates: start: 20131120
  16. ADCIRCA [Suspect]
     Active Substance: TADALAFIL
     Indication: PULMONARY ARTERIAL HYPERTENSION
     Dosage: UNK
     Route: 048
  17. FERROMIA (JAPAN) [Concomitant]
     Dosage: UNK
  18. CEFAZOLIN SODIUM INJECTION [Concomitant]
     Indication: INFECTION PROPHYLAXIS
     Dosage: UNK
     Dates: start: 20150410, end: 20150515

REACTIONS (7)
  - Pneumonia [Recovered/Resolved]
  - Haemoptysis [Recovered/Resolved]
  - Haemoptysis [Recovered/Resolved]
  - Bronchitis [Recovered/Resolved]
  - Haemoptysis [Recovered/Resolved]
  - Haemoptysis [Recovered/Resolved]
  - Device related infection [Recovered/Resolved]

NARRATIVE: CASE EVENT DATE: 20121201
